FAERS Safety Report 6313298-X (Version None)
Quarter: 2009Q3

REPORT INFORMATION
  Report Type: 
  Country: None (occurrence: None)
  Receive Date: 20090818
  Receipt Date: 20090810
  Transmission Date: 20100115
  Serious: Yes (Hospitalization)
  Sender: FDA-Public Use
  Company Number: A0801353A

PATIENT
  Age: 55 Year
  Sex: Female

DRUGS (7)
  1. BUPROPION HYDROCHLORIDE [Suspect]
     Indication: DEPRESSION
     Dosage: 300MG PER DAY
     Route: 048
     Dates: start: 19970101, end: 20090806
  2. LAMICTAL [Suspect]
     Indication: BIPOLAR DISORDER
     Dosage: 150MG PER DAY
     Route: 048
     Dates: start: 20090622
  3. PROZAC [Concomitant]
  4. TRAZODONE HCL [Concomitant]
  5. KLONOPIN [Concomitant]
  6. VICODIN [Concomitant]
  7. SIMVASTATIN [Concomitant]

REACTIONS (9)
  - ADVERSE EVENT [None]
  - AGITATION [None]
  - CRYING [None]
  - DEPRESSION [None]
  - DRUG INEFFECTIVE [None]
  - EUPHORIC MOOD [None]
  - MOOD SWINGS [None]
  - TANGENTIALITY [None]
  - THINKING ABNORMAL [None]
